FAERS Safety Report 23144359 (Version 4)
Quarter: 2024Q1

REPORT INFORMATION
  Report Type: Spontaneous
  Country: US (occurrence: US)
  Receive Date: 20231103
  Receipt Date: 20240207
  Transmission Date: 20240410
  Serious: No
  Sender: FDA-Public Use
  Company Number: US-PFIZER INC-PV202300171670

PATIENT
  Age: 64 Year
  Sex: Female

DRUGS (1)
  1. IBRANCE [Suspect]
     Active Substance: PALBOCICLIB
     Dosage: EVERY DAY FOR 21 DAYS ON 7 DAYS OFF EVERY 28 DAYS

REACTIONS (3)
  - Daydreaming [Unknown]
  - Full blood count abnormal [Unknown]
  - Immune system disorder [Unknown]
